FAERS Safety Report 18683471 (Version 1)
Quarter: 2020Q4

REPORT INFORMATION
  Report Type: Spontaneous
  Country: US (occurrence: US)
  Receive Date: 20201230
  Receipt Date: 20201230
  Transmission Date: 20210114
  Serious: Yes (Hospitalization)
  Sender: FDA-Public Use
  Company Number: None

PATIENT
  Age: 79 Year
  Sex: Female
  Weight: 89.6 kg

DRUGS (1)
  1. CASIRIVIMAB AND IMDEVIMAB TREATMENT UNDER EMERGENCY USE AUTHORIZATION [Suspect]
     Active Substance: CASIRIVIMAB\IMDEVIMAB
     Indication: COVID-19
     Dosage: ?          OTHER FREQUENCY:ONCE;?
     Route: 042
     Dates: start: 20201222, end: 20201222

REACTIONS (5)
  - Drug ineffective [None]
  - Vomiting [None]
  - Pulmonary embolism [None]
  - Anxiety [None]
  - Nausea [None]

NARRATIVE: CASE EVENT DATE: 20201222
